FAERS Safety Report 8225769-X (Version None)
Quarter: 2012Q1

REPORT INFORMATION
  Report Type: 
  Country: None (occurrence: None)
  Receive Date: 20120321
  Receipt Date: 20120312
  Transmission Date: 20120608
  Serious: Yes (Hospitalization, Other)
  Sender: FDA-Public Use
  Company Number: US-ELI_LILLY_AND_COMPANY-US201201004741

PATIENT
  Sex: Female

DRUGS (24)
  1. CILOSTAZOL [Concomitant]
  2. ACETAMINOPHEN [Concomitant]
  3. FLUTICASONE FUROATE [Concomitant]
  4. FORTEO [Suspect]
     Indication: OSTEOPOROSIS
     Dosage: 20 UG, QD
  5. DIPHENOXYLATE HCL + ATROPINE SULFATE [Concomitant]
  6. OXYCODONE HCL [Concomitant]
  7. METOPROLOL SUCCINATE [Concomitant]
  8. OMEPRAZOLE [Concomitant]
  9. ASCORBIC ACID [Concomitant]
  10. ALLOPURINOL [Concomitant]
  11. ALBUTEROL [Concomitant]
  12. CLOPIDOGREL [Concomitant]
  13. CALCIUM CARBONATE [Concomitant]
  14. FERROUS SULFATE TAB [Concomitant]
  15. LOPERAMIDE [Concomitant]
  16. METHADONE HCL [Concomitant]
  17. ASPIRIN [Concomitant]
  18. ONDANSETRON [Concomitant]
  19. ISOSORBIDE DINITRATE [Concomitant]
  20. FORTEO [Suspect]
     Dosage: 20 UG, QD
     Route: 065
  21. LISINOPRIL [Concomitant]
  22. GABAPENTIN [Concomitant]
  23. SIMVASTATIN [Concomitant]
  24. PSYLLIUM [Concomitant]

REACTIONS (27)
  - OROPHARYNGEAL DISCOMFORT [None]
  - DRUG DOSE OMISSION [None]
  - JOINT SWELLING [None]
  - OEDEMA PERIPHERAL [None]
  - OROPHARYNGEAL PAIN [None]
  - FATIGUE [None]
  - GAIT DISTURBANCE [None]
  - SKIN DISORDER [None]
  - MALAISE [None]
  - ASTHENIA [None]
  - ARTHROPATHY [None]
  - TREMOR [None]
  - PAIN [None]
  - DEHYDRATION [None]
  - RENAL DISORDER [None]
  - RASH [None]
  - COUGH [None]
  - CLOSTRIDIAL INFECTION [None]
  - FEELING ABNORMAL [None]
  - APHONIA [None]
  - FALL [None]
  - INJECTION SITE HAEMATOMA [None]
  - DIARRHOEA [None]
  - ANGIOPATHY [None]
  - ERYTHEMA [None]
  - EATING DISORDER [None]
  - FLUID INTAKE REDUCED [None]
